FAERS Safety Report 7914232 (Version 2)
Quarter: 2012Q4

REPORT INFORMATION
  Report Type: Spontaneous
  Country: US (occurrence: None)
  Receive Date: 20110404
  Receipt Date: 20121009
  Transmission Date: 20130627
  Serious: Yes (Disabling, Other)
  Sender: FDA-Public Use
  Company Number: 2011MA002899

PATIENT
  Sex: Female

DRUGS (45)
  1. METOCLOPRAMIDE [Suspect]
     Indication: GASTROINTESTINAL DISORDER
     Dosage: 10 MG;BID-TID;PO
     Dates: start: 20021009, end: 20040224
  2. CIALIS [Concomitant]
  3. GABAPENTIN [Concomitant]
  4. OXAPROZIN [Concomitant]
  5. CARISOPRODOL [Concomitant]
  6. VENLAFAXINE [Concomitant]
  7. NASACORT [Concomitant]
  8. LORATADINE [Concomitant]
  9. DOXYCYCLINE [Concomitant]
  10. PROMETHAZINE [Concomitant]
  11. WELLBUTRIN [Concomitant]
  12. ZYRTEC [Concomitant]
  13. HYOSCYAMINE [Concomitant]
  14. GUIATUSS [Concomitant]
  15. LEVAQUIN [Concomitant]
  16. HYDROCODONE/APAP [Concomitant]
  17. TRILEPTAL [Concomitant]
  18. DICYCLOMINE [Concomitant]
  19. AMOXICILLIN [Concomitant]
  20. Q-TUSSIN [Concomitant]
  21. PROTONIX [Concomitant]
  22. PRILOSEC [Concomitant]
  23. AZMACORT [Concomitant]
  24. TRIAMTERENE/HCTZ [Concomitant]
  25. DEXAMETHASONE [Concomitant]
  26. HYDROXYZINE [Concomitant]
  27. ALLEGRA [Concomitant]
  28. PROPOXYPHENE [Concomitant]
  29. ALBUTEROL [Concomitant]
  30. ALBUTEROL [Concomitant]
  31. PAXIL [Concomitant]
  32. PHENTERMINE [Concomitant]
  33. METRONIDAZOLE [Concomitant]
  34. LOPERAMIDE [Concomitant]
  35. SULFAMETH/TRIMETHOPRIM [Concomitant]
  36. WYGESIC [Concomitant]
  37. AMITRIPTYLINE [Concomitant]
  38. AVELOX [Concomitant]
  39. ESTRADIOL [Concomitant]
  40. BEXTRA [Concomitant]
  41. ERY-TAB [Concomitant]
  42. CHERATUSSIN [Concomitant]
  43. ZITHROMAX [Concomitant]
  44. Q-BID LA [Concomitant]
  45. FERROUS SULFATE [Concomitant]

REACTIONS (11)
  - Extrapyramidal disorder [None]
  - Tardive dyskinesia [None]
  - Pain [None]
  - Anxiety [None]
  - Physical disability [None]
  - Excessive eye blinking [None]
  - Dyskinesia [None]
  - Economic problem [None]
  - Emotional disorder [None]
  - Impaired work ability [None]
  - Family stress [None]
